FAERS Safety Report 4682380-5 (Version None)
Quarter: 2005Q2

REPORT INFORMATION
  Report Type: 
  Country: None (occurrence: None)
  Receive Date: 20050602
  Receipt Date: 20050602
  Transmission Date: 20051028
  Serious: Yes (Hospitalization)
  Sender: FDA-Public Use
  Company Number: None

PATIENT
  Sex: Female

DRUGS (5)
  1. VELCADE [Suspect]
     Indication: MANTLE CELL LYMPHOMA
     Dosage: 1.3 MG/M2 D1 AND D4 OF 21 DAY CYCLE
     Dates: start: 20050418
  2. VELCADE [Suspect]
     Indication: MANTLE CELL LYMPHOMA
     Dosage: 1.3 MG/M2 D1 AND D4 OF 21 DAY CYCLE
     Dates: start: 20050421
  3. VELCADE [Suspect]
     Indication: MANTLE CELL LYMPHOMA
     Dosage: 1.3 MG/M2 D1 AND D4 OF 21 DAY CYCLE
     Dates: start: 20050509
  4. VELCADE [Suspect]
     Indication: MANTLE CELL LYMPHOMA
     Dosage: 1.3 MG/M2 D1 AND D4 OF 21 DAY CYCLE
     Dates: start: 20050512
  5. CHOP [Concomitant]

REACTIONS (3)
  - LUNG INFILTRATION [None]
  - PYREXIA [None]
  - THERAPY NON-RESPONDER [None]
